FAERS Safety Report 5279138-5 (Version None)
Quarter: 2007Q1

REPORT INFORMATION
  Report Type: 
  Country: None (occurrence: None)
  Receive Date: 20070328
  Receipt Date: 20061204
  Transmission Date: 20070707
  Serious: No
  Sender: FDA-Public Use
  Company Number: US-BRISTOL-MYERS SQUIBB COMPANY-13497623

PATIENT
  Age: 56 Year
  Sex: Female
  Weight: 100 kg

DRUGS (13)
  1. SPRYCEL [Suspect]
     Indication: CHRONIC MYELOID LEUKAEMIA
     Route: 048
     Dates: start: 20060826, end: 20060906
  2. ZOLOFT [Concomitant]
  3. SYNTHROID [Concomitant]
  4. MULTI-VITAMIN [Concomitant]
  5. VITAMIN E [Concomitant]
  6. NASONEX [Concomitant]
  7. ESTRATEST [Concomitant]
  8. MUCINEX [Concomitant]
  9. DYAZIDE [Concomitant]
  10. NEXIUM [Concomitant]
  11. CELEBREX [Concomitant]
  12. K-DUR 10 [Concomitant]
  13. ANTIHISTAMINE DRUGS [Concomitant]

REACTIONS (3)
  - DYSPNOEA EXERTIONAL [None]
  - FLUID RETENTION [None]
  - HEADACHE [None]
